FAERS Safety Report 5064315-9 (Version None)
Quarter: 2006Q3

REPORT INFORMATION
  Report Type: 
  Country: None (occurrence: None)
  Receive Date: 20060728
  Receipt Date: 20060717
  Transmission Date: 20061208
  Serious: Yes (Hospitalization, Other)
  Sender: FDA-Public Use
  Company Number: PHHO2006BR11685

PATIENT
  Age: 90 Year
  Sex: Male

DRUGS (3)
  1. ZOLADEX [Concomitant]
  2. PREXIGE [Concomitant]
     Indication: BACK PAIN
  3. ZELMAC / HTF 919A [Suspect]
     Indication: IRRITABLE BOWEL SYNDROME
     Dosage: 6 MG, UNK
     Route: 048

REACTIONS (5)
  - DIARRHOEA [None]
  - DRUG INEFFECTIVE [None]
  - PROSTATECTOMY [None]
  - RENAL SURGERY [None]
  - URINARY TRACT INFECTION [None]
